FAERS Safety Report 24726792 (Version 1)
Quarter: 2024Q4

REPORT INFORMATION
  Report Type: Spontaneous
  Country: US (occurrence: None)
  Receive Date: 20241211
  Receipt Date: 20241211
  Transmission Date: 20250115
  Serious: Yes (Hospitalization)
  Sender: Public
  Company Number: None

PATIENT
  Age: 58 Year
  Sex: Female
  Weight: 96.75 kg

DRUGS (2)
  1. HERBALS\MITRAGYNINE [Suspect]
     Active Substance: HERBALS\MITRAGYNINE
     Indication: Arthritis
     Dates: start: 20220510
  2. HERBALS\MITRAGYNINE [Suspect]
     Active Substance: HERBALS\MITRAGYNINE
     Indication: Asthenia

REACTIONS (14)
  - General physical health deterioration [None]
  - Asthenia [None]
  - Depression [None]
  - Withdrawal syndrome [None]
  - Diarrhoea [None]
  - Pain [None]
  - Vomiting [None]
  - Hot flush [None]
  - Flushing [None]
  - Insomnia [None]
  - Fatigue [None]
  - Nightmare [None]
  - Gastroenteritis salmonella [None]
  - Product complaint [None]

NARRATIVE: CASE EVENT DATE: 20241204
